FAERS Safety Report 9892854 (Version 1)
Quarter: 2014Q1

REPORT INFORMATION
  Report Type: Report from Study
  Country: GB (occurrence: GB)
  Receive Date: 20140213
  Receipt Date: 20140213
  Transmission Date: 20141002
  Serious: Yes (Hospitalization)
  Sender: FDA-Public Use
  Company Number: GB-ROCHE-1346490

PATIENT
  Age: 79 Year
  Sex: Male
  Weight: 97 kg

DRUGS (1)
  1. TOCILIZUMAB [Suspect]
     Indication: RHEUMATOID ARTHRITIS
     Dosage: LAST DOSE PRIOR TO SAE: 19/OCT/2012
     Route: 065
     Dates: start: 20120210

REACTIONS (2)
  - Cerebral small vessel ischaemic disease [Unknown]
  - Osteoarthritis [Unknown]
